FAERS Safety Report 4285679-X (Version None)
Quarter: 2004Q1

REPORT INFORMATION
  Report Type: 
  Country: None (occurrence: None)
  Receive Date: 20040203
  Receipt Date: 20040120
  Transmission Date: 20041129
  Serious: Yes (Hospitalization)
  Sender: FDA-Public Use
  Company Number: 2003-BP-04791NB

PATIENT
  Sex: Male

DRUGS (5)
  1. MEXITIL [Suspect]
     Indication: TORSADE DE POINTES
     Dosage: 300 MG ; PO
     Route: 048
  2. LASIX [Concomitant]
  3. ALDACTONE [Concomitant]
  4. FLUITRAN (TRICHLORMETHIAZIDE) (TA) [Concomitant]
  5. GASTER (FAMOTIDINE ) (TA) [Concomitant]

REACTIONS (1)
  - SINUS ARREST [None]
